FAERS Safety Report 19728551 (Version 2)
Quarter: 2022Q2

REPORT INFORMATION
  Report Type: Spontaneous
  Country: GB (occurrence: GB)
  Receive Date: 20210820
  Receipt Date: 20220405
  Transmission Date: 20220721
  Serious: Yes (Hospitalization)
  Sender: FDA-Public Use
  Company Number: None

PATIENT
  Age: 74 Year
  Sex: Female
  Weight: 85 kg

DRUGS (6)
  1. LOSARTAN POTASSIUM [Suspect]
     Active Substance: LOSARTAN POTASSIUM
     Indication: Ill-defined disorder
     Dosage: 25 MILLIGRAM, QD
     Route: 048
     Dates: start: 20210723, end: 20210811
  2. ESTRADIOL [Concomitant]
     Active Substance: ESTRADIOL
     Indication: Ill-defined disorder
     Dosage: USE AS DIRECTED
     Dates: start: 20200211
  3. ATORVASTATIN [Concomitant]
     Active Substance: ATORVASTATIN
     Indication: Prophylaxis
     Dosage: 1 DOSAGE FORM, QD
     Dates: start: 20201019
  4. INDAPAMIDE [Concomitant]
     Active Substance: INDAPAMIDE
     Indication: Ill-defined disorder
     Dosage: SPA HYPERTENSION PROTOCOL: MORNINGLY
     Dates: start: 20201123
  5. SERTRALINE [Concomitant]
     Active Substance: SERTRALINE HYDROCHLORIDE
     Indication: Ill-defined disorder
     Dosage: TAKE HALF OF ONE TABLET DAILY FOR 1 WEEK THEN E...
     Dates: start: 20210712, end: 20210809
  6. TROSPIUM [Concomitant]
     Active Substance: TROSPIUM
     Indication: Ill-defined disorder
     Dosage: TAKE ONE DAILY
     Dates: start: 20200911

REACTIONS (1)
  - Angioedema [Not Recovered/Not Resolved]

NARRATIVE: CASE EVENT DATE: 20210804
